FAERS Safety Report 7412640-6 (Version None)
Quarter: 2011Q2

REPORT INFORMATION
  Report Type: 
  Country: None (occurrence: None)
  Receive Date: 20110413
  Receipt Date: 20110409
  Transmission Date: 20111010
  Serious: No
  Sender: FDA-Public Use
  Company Number: US-PFIZER INC-2011078473

PATIENT
  Sex: Female
  Weight: 70.3 kg

DRUGS (2)
  1. LYRICA [Suspect]
     Indication: FIBROMYALGIA
     Dosage: 75 MG, 1X/DAY
     Route: 048
     Dates: start: 20110405, end: 20110406
  2. GABAPENTIN [Concomitant]
     Indication: ARTHRITIS
     Dosage: UNK

REACTIONS (2)
  - INSOMNIA [None]
  - HOT FLUSH [None]
